FAERS Safety Report 21051832 (Version 3)
Quarter: 2022Q4

REPORT INFORMATION
  Report Type: Report from Study
  Country: US (occurrence: US)
  Receive Date: 20220707
  Receipt Date: 20221212
  Transmission Date: 20230113
  Serious: Yes (Hospitalization, Other)
  Sender: FDA-Public Use
  Company Number: US-TAKEDA-2022TUS045053

PATIENT
  Sex: Female

DRUGS (2)
  1. HUMAN IMMUNOGLOBULIN G [Suspect]
     Active Substance: HUMAN IMMUNOGLOBULIN G
     Indication: Hypogammaglobulinaemia
     Dosage: UNK
     Route: 065
  2. COVID-19 VACCINE NOS [Suspect]
     Active Substance: COVID-19 VACCINE NOS
     Indication: Product used for unknown indication
     Dosage: UNK
     Route: 065

REACTIONS (13)
  - Pneumonia [Unknown]
  - Breast cancer female [Recovering/Resolving]
  - Cerebrovascular accident [Unknown]
  - Metastases to liver [Recovering/Resolving]
  - Pneumonia bacterial [Unknown]
  - COVID-19 immunisation [Unknown]
  - Fatigue [Unknown]
  - Pain in extremity [Unknown]
  - Tremor [Unknown]
  - Feeling cold [Unknown]
  - Sneezing [Unknown]
  - Limb injury [Unknown]
  - Haematoma [Unknown]
